FAERS Safety Report 13747340 (Version 1)
Quarter: 2017Q3

REPORT INFORMATION
  Report Type: Spontaneous
  Country: SE (occurrence: SE)
  Receive Date: 20170712
  Receipt Date: 20170712
  Transmission Date: 20171127
  Serious: Yes (Other)
  Sender: FDA-Public Use
  Company Number: SE-MYLANLABS-2017M1040456

PATIENT

DRUGS (2)
  1. KLOMIPRAMIN MYLAN 10 MG TABLETTER [Suspect]
     Active Substance: CLOMIPRAMINE
     Indication: AGORAPHOBIA
     Dosage: 10 MG 4 ST PER DAG
     Dates: start: 20170110, end: 20170228
  2. ABILIFY [Concomitant]
     Active Substance: ARIPIPRAZOLE
     Dosage: UNK

REACTIONS (2)
  - Binocular eye movement disorder [Not Recovered/Not Resolved]
  - Vision blurred [Not Recovered/Not Resolved]

NARRATIVE: CASE EVENT DATE: 201701
